FAERS Safety Report 5521107-1 (Version None)
Quarter: 2007Q4

REPORT INFORMATION
  Report Type: 
  Country: None (occurrence: None)
  Receive Date: 20071119
  Receipt Date: 20071109
  Transmission Date: 20080405
  Serious: Yes (Hospitalization)
  Sender: FDA-Public Use
  Company Number: JP-ASTRAZENECA-2007AP06659

PATIENT
  Age: 33353 Day
  Sex: Female

DRUGS (6)
  1. CRESTOR [Suspect]
     Indication: HYPERLIPIDAEMIA
     Route: 048
     Dates: start: 20070509, end: 20071020
  2. PRIMPERAN INJ [Concomitant]
     Indication: GASTRITIS
     Route: 048
     Dates: start: 20000512
  3. EXCELASE [Concomitant]
     Indication: GASTRITIS
     Route: 048
     Dates: start: 20030519
  4. NIVADIL [Concomitant]
     Indication: HYPERTENSION
     Route: 048
     Dates: start: 20031023
  5. EPADEL S [Concomitant]
     Indication: HYPERLIPIDAEMIA
     Route: 048
     Dates: start: 20050404, end: 20071020
  6. GLYSENNID [Concomitant]
     Indication: CONSTIPATION
     Route: 048
     Dates: start: 20070509

REACTIONS (1)
  - THROMBOCYTOPENIA [None]
